FAERS Safety Report 4577916-9 (Version None)
Quarter: 2005Q1

REPORT INFORMATION
  Report Type: 
  Country: None (occurrence: None)
  Receive Date: 20050209
  Receipt Date: 20050125
  Transmission Date: 20050727
  Serious: Yes (Hospitalization)
  Sender: FDA-Public Use
  Company Number: EWC050142450

PATIENT
  Age: 21 Year
  Sex: Male
  Weight: 45 kg

DRUGS (1)
  1. HUMATROPE [Suspect]
     Indication: BLOOD GROWTH HORMONE ABNORMAL
     Dosage: 2 MG/FOUR WEEK
     Dates: start: 20040901, end: 20050108

REACTIONS (4)
  - COMA [None]
  - FALL [None]
  - HEAD INJURY [None]
  - HYPONATRAEMIA [None]
